FAERS Safety Report 11349626 (Version 2)
Quarter: 2015Q3

REPORT INFORMATION
  Report Type: Spontaneous
  Country: US (occurrence: US)
  Receive Date: 20150807
  Receipt Date: 20150815
  Transmission Date: 20151125
  Serious: Yes (Disabling, Other)
  Sender: FDA-Public Use
  Company Number: PHEH2015US014953

PATIENT
  Age: 28 Year
  Sex: Male
  Weight: 77.11 kg

DRUGS (3)
  1. NEORAL [Suspect]
     Active Substance: CYCLOSPORINE
     Dosage: UNK, BID
     Route: 048
     Dates: start: 20130101, end: 20150803
  2. NEORAL [Suspect]
     Active Substance: CYCLOSPORINE
     Indication: LIVER TRANSPLANT
     Dosage: 125 MG, BID
     Route: 048
     Dates: start: 19910710
  3. NEORAL [Suspect]
     Active Substance: CYCLOSPORINE
     Dosage: 125 MG, BID
     Route: 048
     Dates: end: 20150808

REACTIONS (16)
  - Fatigue [Not Recovered/Not Resolved]
  - Bipolar I disorder [Not Recovered/Not Resolved]
  - Major depression [Not Recovered/Not Resolved]
  - Quality of life decreased [Unknown]
  - Arthralgia [Unknown]
  - Hypertension [Unknown]
  - Fear [Not Recovered/Not Resolved]
  - Somnolence [Unknown]
  - Asthenia [Unknown]
  - Sluggishness [Unknown]
  - Decreased interest [Not Recovered/Not Resolved]
  - Disturbance in attention [Unknown]
  - Weight decreased [Unknown]
  - Depressed mood [Not Recovered/Not Resolved]
  - Irritability [Unknown]
  - Anhedonia [Unknown]

NARRATIVE: CASE EVENT DATE: 20130101
